FAERS Safety Report 9445438 (Version 2)
Quarter: 2013Q3

REPORT INFORMATION
  Report Type: Spontaneous
  Country: DK (occurrence: DK)
  Receive Date: 20130807
  Receipt Date: 20130916
  Transmission Date: 20140515
  Serious: Yes (Other)
  Sender: FDA-Public Use
  Company Number: DK-ACTAVIS-2013-13823

PATIENT
  Age: 26 Year
  Sex: Male
  Weight: 72 kg

DRUGS (1)
  1. TRAMADOL ACTAVIS [Suspect]
     Indication: MUSCULOSKELETAL PAIN
     Dosage: 50 MG, PRN
     Route: 048
     Dates: start: 20130711, end: 20130722

REACTIONS (4)
  - Melaena [Recovering/Resolving]
  - Gingival bleeding [Recovering/Resolving]
  - Dysgeusia [Recovering/Resolving]
  - Oral mucosal blistering [Recovering/Resolving]
